FAERS Safety Report 7773205-X (Version None)
Quarter: 2011Q3

REPORT INFORMATION
  Report Type: 
  Country: None (occurrence: None)
  Receive Date: 20110922
  Receipt Date: 20110912
  Transmission Date: 20111222
  Serious: Yes (Other)
  Sender: FDA-Public Use
  Company Number: FR-ALLERGAN-1112113US

PATIENT
  Age: 51 Year
  Sex: Female

DRUGS (1)
  1. VISTABEL [Suspect]
     Indication: SKIN WRINKLING
     Dosage: 24 UNITS, SINGLE
     Route: 030
     Dates: start: 20110420, end: 20110420

REACTIONS (6)
  - DYSPHAGIA [None]
  - TREMOR [None]
  - PARAESTHESIA [None]
  - PALPITATIONS [None]
  - MUSCLE SPASMS [None]
  - MUSCULAR WEAKNESS [None]
